FAERS Safety Report 17328063 (Version 1)
Quarter: 2020Q1

REPORT INFORMATION
  Report Type: Spontaneous
  Country: NL (occurrence: NL)
  Receive Date: 20200127
  Receipt Date: 20200127
  Transmission Date: 20200409
  Serious: Yes (Other)
  Sender: FDA-Public Use
  Company Number: NL-MYLANLABS-2020M1009538

PATIENT
  Sex: Male

DRUGS (3)
  1. AVAMYS [Concomitant]
     Active Substance: FLUTICASONE FUROATE
     Dosage: UNK
  2. OMEPRAZOLE. [Suspect]
     Active Substance: OMEPRAZOLE
     Indication: ABDOMINAL PAIN
     Dosage: MAAGSAPRESISTENTE CAPSULE, 20 MG (MILLIGRAM), 1 KEER PER DAG, 1
     Dates: start: 201911
  3. PANTOPRAZOLE [Suspect]
     Active Substance: PANTOPRAZOLE
     Indication: ABDOMINAL PAIN
     Dosage: MAAGSAPRESISTENTE TABLET, 20 MG (MILLIGRAM), 1 KEER PER DAG, 1
     Dates: start: 201911

REACTIONS (4)
  - Pallor [Recovered/Resolved]
  - Syncope [Recovered/Resolved]
  - Heart rate increased [Recovered/Resolved]
  - Hyperventilation [Recovered/Resolved]
